FAERS Safety Report 4355325-5 (Version None)
Quarter: 2004Q2

REPORT INFORMATION
  Report Type: 
  Country: None (occurrence: None)
  Receive Date: 20040504
  Receipt Date: 20030219
  Transmission Date: 20050107
  Serious: Yes (Hospitalization)
  Sender: FDA-Public Use
  Company Number: 200300234

PATIENT
  Age: 9 Month
  Sex: Male
  Weight: 8.1647 kg

DRUGS (2)
  1. MOTRIN [Suspect]
     Indication: PYREXIA
     Dosage: 75 MG Q6H PO
     Route: 048
     Dates: start: 20030208, end: 20030209
  2. CHILDREN'S TYLENOL SUSPENSION PRODUCT (ACETAMINOPHEN) [Concomitant]

REACTIONS (11)
  - BLOOD PRESSURE DIASTOLIC DECREASED [None]
  - FEBRILE CONVULSION [None]
  - GASTRITIS [None]
  - HAEMATEMESIS [None]
  - HEART RATE INCREASED [None]
  - PALLOR [None]
  - RESPIRATORY RATE INCREASED [None]
  - SCREAMING [None]
  - STAPHYLOCOCCAL INFECTION [None]
  - UPPER GASTROINTESTINAL HAEMORRHAGE [None]
  - UPPER RESPIRATORY TRACT INFECTION [None]
